FAERS Safety Report 8763996 (Version 3)
Quarter: 2014Q2

REPORT INFORMATION
  Report Type: Spontaneous
  Country: US (occurrence: US)
  Receive Date: 20120831
  Receipt Date: 20140619
  Transmission Date: 20141212
  Serious: Yes (Hospitalization, Other)
  Sender: FDA-Public Use
  Company Number: US-009507513-1203USA00791

PATIENT
  Sex: Male

DRUGS (1)
  1. FOSAMAX [Suspect]
     Indication: OSTEOPOROSIS
     Dosage: 10 MG QD
     Route: 048
     Dates: start: 19980223, end: 20100609

REACTIONS (24)
  - Femur fracture [Recovered/Resolved]
  - Open reduction of fracture [Recovered/Resolved]
  - Fall [Unknown]
  - Low turnover osteopathy [Unknown]
  - Anxiety [Unknown]
  - Depression [Not Recovered/Not Resolved]
  - Post-traumatic stress disorder [Unknown]
  - Hypercholesterolaemia [Unknown]
  - Chest pain [Unknown]
  - Bronchitis [Unknown]
  - Overweight [Not Recovered/Not Resolved]
  - Lumbar spinal stenosis [Not Recovered/Not Resolved]
  - Sinusitis [Not Recovered/Not Resolved]
  - Weight decreased [Unknown]
  - Large intestine polyp [Unknown]
  - Diverticulum [Unknown]
  - Essential tremor [Unknown]
  - Anxiety [Unknown]
  - Vitamin D decreased [Recovered/Resolved]
  - Chest pain [Unknown]
  - Osteopenia [Unknown]
  - Pain in extremity [Unknown]
  - Gastrooesophageal reflux disease [Unknown]
  - Diarrhoea [Unknown]
